FAERS Safety Report 20696443 (Version 1)
Quarter: 2022Q2

REPORT INFORMATION
  Report Type: Spontaneous
  Country: JP (occurrence: JP)
  Receive Date: 20220411
  Receipt Date: 20220411
  Transmission Date: 20220720
  Serious: Yes (Other)
  Sender: FDA-Public Use
  Company Number: JP-NOVARTISPH-NVSC2022JP080951

PATIENT
  Age: 72 Year
  Sex: Female

DRUGS (3)
  1. METHOTREXATE [Suspect]
     Active Substance: METHOTREXATE
     Indication: Rheumatoid arthritis
     Dosage: 6 MG, QW (FOR LAST 6 YEARS)
     Route: 065
  2. IGURATIMOD [Suspect]
     Active Substance: IGURATIMOD
     Indication: Rheumatoid arthritis
     Dosage: 25 MG, QD (FOR LAST 6 YEARS)
     Route: 065
  3. AMPICILLIN AND SULBACTAM [Concomitant]
     Active Substance: AMPICILLIN SODIUM\SULBACTAM SODIUM
     Indication: Product used for unknown indication
     Dosage: UNK
     Route: 065

REACTIONS (6)
  - Encephalitis [Unknown]
  - Hepatic neoplasm [Unknown]
  - Epstein-Barr virus infection reactivation [Unknown]
  - Lymphoproliferative disorder [Unknown]
  - Varicella zoster pneumonia [Recovering/Resolving]
  - Varicella zoster virus infection [Unknown]
